FAERS Safety Report 12998455 (Version 2)
Quarter: 2016Q4

REPORT INFORMATION
  Report Type: Spontaneous
  Country: TR (occurrence: TR)
  Receive Date: 20161205
  Receipt Date: 20161212
  Transmission Date: 20170207
  Serious: Yes (Life-Threatening)
  Sender: FDA-Public Use
  Company Number: TR-PFIZER INC-2016559985

PATIENT
  Age: 60 Year
  Sex: Female
  Weight: 75 kg

DRUGS (2)
  1. CYTOTEC [Suspect]
     Active Substance: MISOPROSTOL
     Indication: UTERINE CERVIX DILATION PROCEDURE
     Dosage: 200 MCG, SINGLE DOSE
     Route: 048
     Dates: start: 20161103, end: 20161103
  2. CYTOTEC [Suspect]
     Active Substance: MISOPROSTOL
     Dosage: 200 MCG, SINGLE DOSE
     Route: 067
     Dates: start: 20161103, end: 20161103

REACTIONS (5)
  - Swollen tongue [Recovered/Resolved]
  - Dyspnoea [Recovered/Resolved]
  - Oedema mouth [Recovered/Resolved]
  - Lip swelling [Recovered/Resolved]
  - Product use issue [Unknown]

NARRATIVE: CASE EVENT DATE: 20161103
